FAERS Safety Report 19784049 (Version 1)
Quarter: 2021Q3

REPORT INFORMATION
  Report Type: Spontaneous
  Country: IR (occurrence: IR)
  Receive Date: 20210903
  Receipt Date: 20210903
  Transmission Date: 20211014
  Serious: Yes (Hospitalization)
  Sender: FDA-Public Use
  Company Number: IR-AMGEN-IRNSP2021134530

PATIENT

DRUGS (1)
  1. FILGRASTIM [Suspect]
     Active Substance: FILGRASTIM
     Indication: AUTOLOGOUS HAEMATOPOIETIC STEM CELL TRANSPLANT
     Dosage: 5 MICROGRAM/KILOGRAM (FROM DAY 05)
     Route: 042

REACTIONS (5)
  - Pyrexia [Unknown]
  - Infection [Unknown]
  - Febrile neutropenia [Unknown]
  - Influenza [Unknown]
  - Bone pain [Unknown]
